FAERS Safety Report 10040996 (Version 1)
Quarter: 2014Q1

REPORT INFORMATION
  Report Type: Spontaneous
  Country: US (occurrence: None)
  Receive Date: 20140326
  Receipt Date: 20140326
  Transmission Date: 20141002
  Serious: Yes (Death, Life-Threatening, Hospitalization)
  Sender: FDA-Public Use
  Company Number: None

PATIENT
  Age: 92 Year
  Sex: Male
  Weight: 51.5 kg

DRUGS (2)
  1. CEFTRIAXONE [Suspect]
     Indication: ATYPICAL PNEUMONIA
     Route: 042
     Dates: start: 20131205, end: 20131206
  2. AZITHROMYCIN [Suspect]
     Route: 048
     Dates: start: 20131208, end: 20131213

REACTIONS (5)
  - Clostridium difficile colitis [None]
  - Septic shock [None]
  - Megacolon [None]
  - Klebsiella infection [None]
  - Urinary tract infection [None]
